FAERS Safety Report 4434196-2 (Version None)
Quarter: 2004Q3

REPORT INFORMATION
  Report Type: 
  Country: None (occurrence: None)
  Receive Date: 20040726
  Receipt Date: 20040302
  Transmission Date: 20050211
  Serious: No
  Sender: FDA-Public Use
  Company Number: USA040157097

PATIENT
  Age: 69 Year
  Sex: Female
  Weight: 84 kg

DRUGS (6)
  1. FORTEO [Suspect]
     Indication: OSTEOPOROSIS
     Dosage: 20 UG DAY
     Dates: start: 20040115, end: 20040119
  2. NORVASC [Concomitant]
  3. SPIRONOLACTONE [Concomitant]
  4. LIBRIUM [Concomitant]
  5. CALCIUM WITH VITAMIN D [Concomitant]
  6. MULTI-VITAMIN [Concomitant]

REACTIONS (8)
  - ABNORMAL SENSATION IN EYE [None]
  - EYE PRURITUS [None]
  - EYE REDNESS [None]
  - EYE SWELLING [None]
  - OEDEMA PERIPHERAL [None]
  - PRURITUS [None]
  - RASH MORBILLIFORM [None]
  - VISION BLURRED [None]
